FAERS Safety Report 4754023-3 (Version None)
Quarter: 2005Q3

REPORT INFORMATION
  Report Type: 
  Country: None (occurrence: None)
  Receive Date: 20050826
  Receipt Date: 20050317
  Transmission Date: 20060218
  Serious: Yes (Hospitalization, Disabling, Other)
  Sender: FDA-Public Use
  Company Number: US-MERCK-0503USA03443

PATIENT
  Age: 45 Year
  Sex: Female
  Weight: 82 kg

DRUGS (2)
  1. VIOXX [Suspect]
     Indication: ARTHRALGIA
     Route: 048
     Dates: start: 20000901, end: 20030421
  2. VIOXX [Suspect]
     Route: 048
     Dates: start: 20000901, end: 20030421

REACTIONS (16)
  - BACK INJURY [None]
  - BACK PAIN [None]
  - BLOOD CHOLESTEROL INCREASED [None]
  - CARDIAC DISORDER [None]
  - DEPRESSION [None]
  - GASTROOESOPHAGEAL REFLUX DISEASE [None]
  - HEPATITIS B [None]
  - INSOMNIA [None]
  - LIVER DISORDER [None]
  - MIGRAINE [None]
  - MYOCARDIAL INFARCTION [None]
  - PALPITATIONS [None]
  - RHEUMATOID ARTHRITIS [None]
  - SYNCOPE [None]
  - SYSTEMIC LUPUS ERYTHEMATOSUS [None]
  - WEIGHT INCREASED [None]
